FAERS Safety Report 6228234-4 (Version None)
Quarter: 2009Q2

REPORT INFORMATION
  Report Type: 
  Country: None (occurrence: None)
  Receive Date: 20090612
  Receipt Date: 20090608
  Transmission Date: 20091009
  Serious: No
  Sender: FDA-Public Use
  Company Number: US-B.I. PHARMACEUTICALS,INC./RIDGEFIELD-2009-BP-07098BP

PATIENT
  Sex: Female

DRUGS (6)
  1. SPIRIVA [Suspect]
     Indication: EMPHYSEMA
     Dosage: 18MCG
     Route: 055
     Dates: start: 20080101, end: 20080101
  2. SPIRIVA [Suspect]
     Indication: ASTHMA
  3. CARDIZEM [Concomitant]
     Indication: HYPERTENSION
  4. ALTACE [Concomitant]
     Indication: HYPERTENSION
  5. SINGULAIR [Concomitant]
     Indication: MULTIPLE ALLERGIES
  6. VITAMINS [Concomitant]
     Indication: PROPHYLAXIS

REACTIONS (1)
  - URINARY TRACT INFECTION [None]
